FAERS Safety Report 4634527-4 (Version None)
Quarter: 2005Q2

REPORT INFORMATION
  Report Type: 
  Country: None (occurrence: None)
  Receive Date: 20050411
  Receipt Date: 20050331
  Transmission Date: 20051028
  Serious: Yes (Life-Threatening, Hospitalization)
  Sender: FDA-Public Use
  Company Number: 2005CG00624

PATIENT
  Age: 55 Year
  Sex: Male
  Weight: 87 kg

DRUGS (1)
  1. CRESTOR [Suspect]
     Indication: HYPERCHOLESTEROLAEMIA
     Dosage: 20 MG QD PO
     Route: 048
     Dates: start: 20041119, end: 20050130

REACTIONS (8)
  - FIBROSIS [None]
  - HAEMOTHORAX [None]
  - INCISIONAL HERNIA [None]
  - PSEUDOCYST [None]
  - SPLENIC HAEMATOMA [None]
  - SPLENIC INJURY [None]
  - SPLENIC LESION [None]
  - SPLENIC RUPTURE [None]
